FAERS Safety Report 5141751-3 (Version None)
Quarter: 2006Q4

REPORT INFORMATION
  Report Type: 
  Country: None (occurrence: None)
  Receive Date: 20061027
  Receipt Date: 20061019
  Transmission Date: 20070319
  Serious: Yes (Hospitalization)
  Sender: FDA-Public Use
  Company Number: B0442146A

PATIENT
  Age: 42 Year
  Sex: Male

DRUGS (6)
  1. PAXIL [Suspect]
     Indication: DEPRESSION
     Dosage: ORAL
     Route: 048
  2. UNKNOWN (FORMULATION UNKNOWN) [Concomitant]
  3. ANALGESIC (ANALGESIC) (FORMULATION UNKNOWN) [Concomitant]
  4. SULPIRIDE [Concomitant]
  5. CHLORPROMAZINE HCL [Concomitant]
  6. AMITRIPTYLINE HCL [Concomitant]

REACTIONS (22)
  - ABNORMAL BEHAVIOUR [None]
  - ABULIA [None]
  - AFFECT LABILITY [None]
  - ANOREXIA [None]
  - ANXIETY [None]
  - CONDITION AGGRAVATED [None]
  - CRYING [None]
  - DIZZINESS [None]
  - FEELING GUILTY [None]
  - FRUSTRATION [None]
  - HYPOMANIA [None]
  - INSOMNIA [None]
  - IRRITABILITY [None]
  - MALAISE [None]
  - MOOD ALTERED [None]
  - NAUSEA [None]
  - OVERDOSE [None]
  - SELF INJURIOUS BEHAVIOUR [None]
  - SLEEP DISORDER [None]
  - SUICIDAL IDEATION [None]
  - SUICIDE ATTEMPT [None]
  - WEIGHT DECREASED [None]
